FAERS Safety Report 15957016 (Version 1)
Quarter: 2019Q1

REPORT INFORMATION
  Report Type: Spontaneous
  Country: NL (occurrence: NL)
  Receive Date: 20190213
  Receipt Date: 20190213
  Transmission Date: 20190417
  Serious: Yes (Other)
  Sender: FDA-Public Use
  Company Number: NL-MYLANLABS-2019M1012482

PATIENT
  Age: 45 Year
  Sex: Male
  Weight: 69 kg

DRUGS (8)
  1. FLIXONASE [Concomitant]
     Active Substance: FLUTICASONE PROPIONATE
     Dosage: 1-2DD0,5ST
     Dates: start: 20180526
  2. PARACETAMOL [Concomitant]
     Active Substance: ACETAMINOPHEN
     Dosage: 1000 MILLIGRAM (ZO NODIG 4DD1000MG)
     Dates: start: 20180526
  3. MACROGOL [Concomitant]
     Active Substance: POLYETHYLENE GLYCOLS
     Dosage: 1 DOSAGE FORM (ZO NODIG 2DD)
     Dates: start: 20180527
  4. DEXAMETHASON                       /00016001/ [Concomitant]
     Active Substance: DEXAMETHASONE
     Dosage: UNK
     Dates: start: 20180604
  5. CISPLATIN. [Concomitant]
     Active Substance: CISPLATIN
     Dates: start: 20180606
  6. GLYCEROPHOSPHORIC ACID [Concomitant]
     Dosage: 3X PER DAG 20MMOL
     Dates: start: 20180529
  7. PIPERACILLIN/TAZOBACTAM [Suspect]
     Active Substance: PIPERACILLIN SODIUM\TAZOBACTAM SODIUM
     Indication: CULTURE URINE POSITIVE
     Dosage: 1 DOSAGE FORM, Q8H (3X PER DAG 1)
     Route: 042
     Dates: start: 20180529, end: 20180608
  8. TEMAZEPAM. [Concomitant]
     Active Substance: TEMAZEPAM
     Dosage: 10 MILLIGRAM (ZN1DD1)
     Dates: start: 20180526

REACTIONS (1)
  - Acute kidney injury [Recovered/Resolved]

NARRATIVE: CASE EVENT DATE: 20180606
